FAERS Safety Report 18404727 (Version 1)
Quarter: 2020Q4

REPORT INFORMATION
  Report Type: Spontaneous
  Country: US (occurrence: US)
  Receive Date: 20201020
  Receipt Date: 20201020
  Transmission Date: 20210114
  Serious: Yes (Hospitalization, Other)
  Sender: FDA-Public Use
  Company Number: None

PATIENT
  Age: 45 Year
  Sex: Female
  Weight: 87.3 kg

DRUGS (12)
  1. VITAMIN B12 [Concomitant]
     Active Substance: CYANOCOBALAMIN
  2. ZOLOFT [Concomitant]
     Active Substance: SERTRALINE HYDROCHLORIDE
  3. PLAVIX [Concomitant]
     Active Substance: CLOPIDOGREL BISULFATE
  4. PANTOPRAZOLE [Concomitant]
     Active Substance: PANTOPRAZOLE
  5. ATIVAN [Concomitant]
     Active Substance: LORAZEPAM
  6. MAGNESIUM [Concomitant]
     Active Substance: MAGNESIUM
  7. VITAMIN D3 [Concomitant]
     Active Substance: CHOLECALCIFEROL
  8. COENZYME Q10 [Concomitant]
     Active Substance: DIETARY SUPPLEMENT\UBIDECARENONE
  9. DEXAMETHASONE. [Suspect]
     Active Substance: DEXAMETHASONE
     Indication: MIGRAINE
     Dosage: ?          QUANTITY:3 TABLET(S);OTHER FREQUENCY:3-2-1 2 DAYS TAPER;?
     Route: 048
     Dates: start: 20200529, end: 20200601
  10. B-2 [Concomitant]
  11. ASPIRIN. [Concomitant]
     Active Substance: ASPIRIN
  12. LEVOTHYROXINE. [Concomitant]
     Active Substance: LEVOTHYROXINE

REACTIONS (5)
  - Type 1 diabetes mellitus [None]
  - Pollakiuria [None]
  - Latent autoimmune diabetes in adults [None]
  - Vision blurred [None]
  - Thirst [None]

NARRATIVE: CASE EVENT DATE: 20200529
